FAERS Safety Report 5605148-1 (Version None)
Quarter: 2008Q1

REPORT INFORMATION
  Report Type: 
  Country: None (occurrence: None)
  Receive Date: 20080123
  Receipt Date: 20080107
  Transmission Date: 20080703
  Serious: Yes (Hospitalization)
  Sender: FDA-Public Use
  Company Number: 0810001

PATIENT
  Age: 8 Year
  Sex: Male

DRUGS (1)
  1. ORFADIN [Suspect]
     Indication: TYROSINAEMIA
     Dosage: 30 MILLIGRAM A DAY
     Dates: start: 20020711, end: 20071130

REACTIONS (3)
  - DEVELOPMENTAL DELAY [None]
  - LIVER TRANSPLANT [None]
  - PORPHYRIA [None]
